FAERS Safety Report 6718542-2 (Version None)
Quarter: 2010Q2

REPORT INFORMATION
  Report Type: 
  Country: None (occurrence: None)
  Receive Date: 20100510
  Receipt Date: 20100506
  Transmission Date: 20101027
  Serious: Yes (Hospitalization)
  Sender: FDA-Public Use
  Company Number: US-GILEAD-2010-0028695

PATIENT
  Sex: Female
  Weight: 59.02 kg

DRUGS (15)
  1. LETAIRIS [Suspect]
     Indication: PULMONARY ARTERIAL HYPERTENSION
     Route: 048
     Dates: start: 20090602
  2. COUMADIN [Concomitant]
  3. ASPIRIN [Concomitant]
  4. LASIX [Concomitant]
  5. ENALAPRIL MALEATE [Concomitant]
  6. BISOPROLOL FUMARATE [Concomitant]
  7. NIFEDIPINE [Concomitant]
  8. FOSAMAX [Concomitant]
  9. PROTONIX [Concomitant]
  10. AMBIEN [Concomitant]
  11. ROPINIROLE [Concomitant]
  12. LOVASTATIN [Concomitant]
  13. FLUOXETINE [Concomitant]
  14. FOLBIC [Concomitant]
  15. POTASSIUM CHLORIDE [Concomitant]

REACTIONS (1)
  - CARDIAC FAILURE CONGESTIVE [None]
